FAERS Safety Report 9123103 (Version 3)
Quarter: 2013Q1

REPORT INFORMATION
  Report Type: Spontaneous
  Country: CA (occurrence: CA)
  Receive Date: 20130227
  Receipt Date: 20130326
  Transmission Date: 20140127
  Serious: No
  Sender: FDA-Public Use
  Company Number: CA-ELI_LILLY_AND_COMPANY-CA201302008763

PATIENT
  Sex: Male
  Weight: 100 kg

DRUGS (8)
  1. EFFIENT [Suspect]
     Indication: MYOCARDIAL INFARCTION
     Dosage: 60 MG, LOADING DOSE X2
     Route: 048
     Dates: start: 20130222
  2. EFFIENT [Suspect]
     Dosage: UNK
     Dates: start: 20130223
  3. BIVALIRUDIN [Concomitant]
     Route: 042
  4. NITROGLYCERIN [Concomitant]
  5. VERSED [Concomitant]
     Route: 042
  6. FENTANYL [Concomitant]
     Route: 042
  7. TELMISARTAN [Concomitant]
     Dosage: 80 MG, QD
  8. CLONAZEPAM [Concomitant]

REACTIONS (1)
  - Vomiting [Recovered/Resolved]
